FAERS Safety Report 10227014 (Version 2)
Quarter: 2014Q2

REPORT INFORMATION
  Report Type: Report from Study
  Country: US (occurrence: US)
  Receive Date: 20140610
  Receipt Date: 20140610
  Transmission Date: 20141212
  Serious: Yes (Other)
  Sender: FDA-Public Use
  Company Number: US-ROCHE-1352294

PATIENT
  Age: 54 Year
  Sex: Female
  Weight: 84.9 kg

DRUGS (3)
  1. TRASTUZUMAB EMTANSINE [Suspect]
     Indication: BREAST CANCER METASTATIC
     Route: 065
     Dates: start: 201311
  2. HERCEPTIN [Suspect]
     Indication: BREAST CANCER METASTATIC
     Route: 065
     Dates: start: 2007, end: 201207
  3. VASOTEC [Concomitant]
     Indication: HYPERTENSION
     Route: 048
     Dates: start: 1995

REACTIONS (8)
  - Epistaxis [Not Recovered/Not Resolved]
  - Mouth haemorrhage [Recovered/Resolved]
  - Haemorrhage [Recovered/Resolved]
  - Glossodynia [Not Recovered/Not Resolved]
  - Feeling abnormal [Not Recovered/Not Resolved]
  - Dry mouth [Recovering/Resolving]
  - Weight decreased [Not Recovered/Not Resolved]
  - Recurrent cancer [Recovering/Resolving]
